FAERS Safety Report 9928656 (Version 1)
Quarter: 2014Q1

REPORT INFORMATION
  Report Type: Spontaneous
  Country: CN (occurrence: CN)
  Receive Date: 20140227
  Receipt Date: 20140227
  Transmission Date: 20141002
  Serious: Yes (Hospitalization, Other)
  Sender: FDA-Public Use
  Company Number: PHHY2014CN019238

PATIENT
  Age: 49 Year
  Sex: Male

DRUGS (1)
  1. DIGOXIN [Suspect]
     Indication: HYPERTENSION
     Dosage: 0.25 MG, BID

REACTIONS (8)
  - Aneurysm ruptured [Unknown]
  - Chest discomfort [Recovered/Resolved]
  - Palpitations [Recovered/Resolved]
  - Hyperhidrosis [Unknown]
  - Drug level increased [Unknown]
  - Vomiting [Unknown]
  - Medication error [Unknown]
  - Overdose [Unknown]
